FAERS Safety Report 9851358 (Version 1)
Quarter: 2014Q1

REPORT INFORMATION
  Report Type: Spontaneous
  Country: CD (occurrence: CD)
  Receive Date: 20140129
  Receipt Date: 20140129
  Transmission Date: 20141002
  Serious: Yes (Hospitalization)
  Sender: FDA-Public Use
  Company Number: CD-009507513-1401COD011799

PATIENT
  Age: 27 Year
  Sex: Male
  Weight: 71 kg

DRUGS (1)
  1. IVERMECTIN [Suspect]
     Dosage: 4 TABLETS, UNK
     Route: 048
     Dates: start: 20131107

REACTIONS (5)
  - Feeling cold [Recovered/Resolved]
  - Headache [Recovered/Resolved]
  - Agitation [Recovered/Resolved]
  - Logorrhoea [Recovered/Resolved]
  - Asthenia [Recovered/Resolved]
